FAERS Safety Report 13668328 (Version 2)
Quarter: 2017Q3

REPORT INFORMATION
  Report Type: Report from Study
  Country: AR (occurrence: AR)
  Receive Date: 20170620
  Receipt Date: 20170704
  Transmission Date: 20171127
  Serious: Yes (Other)
  Sender: FDA-Public Use
  Company Number: PHHY2017AR088761

PATIENT
  Sex: Female

DRUGS (2)
  1. DIOVAN D [Suspect]
     Active Substance: HYDROCHLOROTHIAZIDE\VALSARTAN
     Indication: HYPERTENSION
     Dosage: 1 DF (HYDROCHLOROTHIAZIDE 25 AND VALSARTAN 320, UNITS NOT PROVIDED), QD (5 YEARS AGO APPROXIMATELY)
     Route: 065
  2. DIOVAN D [Suspect]
     Active Substance: HYDROCHLOROTHIAZIDE\VALSARTAN
     Dosage: 1.5 DF (HYDROCHLOROTHIAZIDE 25 AND VALSARTAN 320, UNITS NOT PROVIDED), QD (WHEN BLOOD PRESSURE HIGH)
     Route: 065

REACTIONS (5)
  - Blood pressure increased [Recovering/Resolving]
  - Eye haemorrhage [Recovering/Resolving]
  - Drug prescribing error [Unknown]
  - Thrombosis [Recovering/Resolving]
  - Wrong technique in product usage process [Unknown]
